FAERS Safety Report 14030822 (Version 1)
Quarter: 2017Q4

REPORT INFORMATION
  Report Type: Spontaneous
  Country: US (occurrence: US)
  Receive Date: 20171002
  Receipt Date: 20171002
  Transmission Date: 20180321
  Serious: Yes (Other)
  Sender: FDA-Public Use
  Company Number: US-AMGEN-USASP2017147569

PATIENT
  Age: 49 Year
  Sex: Female

DRUGS (1)
  1. ENBREL [Suspect]
     Active Substance: ETANERCEPT
     Indication: ANKYLOSING SPONDYLITIS
     Dosage: 50 MG, UNK
     Route: 065
     Dates: start: 20170823

REACTIONS (10)
  - Swollen tongue [Unknown]
  - Back pain [Not Recovered/Not Resolved]
  - Tongue erythema [Unknown]
  - Nasal congestion [Unknown]
  - Rash papular [Unknown]
  - Paraesthesia [Unknown]
  - Diarrhoea [Unknown]
  - Cough [Unknown]
  - Glossodynia [Unknown]
  - Piloerection [Unknown]

NARRATIVE: CASE EVENT DATE: 2017
